FAERS Safety Report 6894722-0 (Version None)
Quarter: 2010Q3

REPORT INFORMATION
  Report Type: 
  Country: None (occurrence: None)
  Receive Date: 20100728
  Receipt Date: 20100715
  Transmission Date: 20110219
  Serious: Yes (Other)
  Sender: FDA-Public Use
  Company Number: 2010MA000905

PATIENT
  Age: 45 Year
  Sex: Female

DRUGS (18)
  1. DIAZEPAM [Suspect]
     Indication: ANXIETY
     Dosage: 10 MG;QD;PO
     Route: 048
  2. ZOLPIDEM [Suspect]
     Indication: INSOMNIA
     Dosage: 10 MG;QD;PO
     Route: 048
     Dates: end: 20100618
  3. DIHYDROCODEINE COMPOUND [Suspect]
     Indication: PAIN
     Dosage: PPO
     Route: 048
     Dates: end: 20100618
  4. CAFFEINE CITRATE [Suspect]
     Indication: INSOMNIA
  5. HALOPERIDOL [Suspect]
     Indication: PSYCHOTIC DISORDER
     Dosage: 10 MG;QD;PO
     Route: 048
  6. VALPROIC ACID [Suspect]
     Indication: AFFECTIVE DISORDER
     Dosage: 800 MG;PO
     Route: 048
  7. ZOLPIDEM [Concomitant]
  8. DIHYDROCODEINE BITARTRATE INJ [Concomitant]
  9. CAFFEINE [Concomitant]
  10. SIMVASTATIN [Concomitant]
  11. LANSOPRAZOLE [Concomitant]
  12. CANDESARTAN CILEXETIL [Concomitant]
  13. AMLODIPINE [Concomitant]
  14. PROCYCLIDINE HYDROCHLORIDE 2MG TAB [Concomitant]
  15. ACETYLSALICYLIC ACID SRT [Concomitant]
  16. CETIRIZINE HYDROCHLORIDE [Concomitant]
  17. CITALOPRAM [Concomitant]
  18. INSULIN [Concomitant]

REACTIONS (3)
  - CONFUSIONAL STATE [None]
  - HALLUCINATION [None]
  - SEDATION [None]
